FAERS Safety Report 8514321 (Version 2)
Quarter: 2013Q3

REPORT INFORMATION
  Report Type: Spontaneous
  Country: ZA (occurrence: ZA)
  Receive Date: 20120416
  Receipt Date: 20130711
  Transmission Date: 20140515
  Serious: Yes (Hospitalization)
  Sender: FDA-Public Use
  Company Number: PHHY2012ZA031244

PATIENT
  Age: 8 Year
  Sex: Male

DRUGS (3)
  1. RITALIN [Suspect]
     Dosage: 10 MG, UNK
     Dates: start: 201111, end: 201112
  2. RITALIN [Suspect]
     Dosage: 10 MG, UNK
     Dates: start: 201201
  3. RITALIN [Suspect]
     Dosage: 10 MG, UNK
     Dates: start: 20120409

REACTIONS (1)
  - Cardiovascular disorder [Unknown]
